FAERS Safety Report 10175510 (Version 6)
Quarter: 2014Q4

REPORT INFORMATION
  Report Type: Report from Study
  Country: CA (occurrence: CA)
  Receive Date: 20140516
  Receipt Date: 20141226
  Transmission Date: 20150528
  Serious: Yes (Hospitalization)
  Sender: FDA-Public Use
  Company Number: CA-ROCHE-1061725

PATIENT
  Age: 59 Year
  Sex: Male
  Weight: 83.8 kg

DRUGS (17)
  1. TYLENOL [Concomitant]
     Active Substance: ACETAMINOPHEN
     Indication: PYREXIA
     Route: 065
     Dates: start: 20120420, end: 20120421
  2. BENADRYL [Concomitant]
     Active Substance: DIPHENHYDRAMINE HYDROCHLORIDE
     Indication: ECZEMA
     Route: 065
     Dates: start: 20120717, end: 20120801
  3. NITRO PATCH [Concomitant]
     Indication: ATRIAL FIBRILLATION
     Route: 065
     Dates: start: 20120421, end: 20120421
  4. CALCIUM CARBONATE. [Concomitant]
     Active Substance: CALCIUM CARBONATE
     Indication: DYSPEPSIA
     Route: 065
     Dates: start: 20120423, end: 20120423
  5. CALCIUM CARBONATE. [Concomitant]
     Active Substance: CALCIUM CARBONATE
     Dosage: BRAND: MAALOX
     Route: 065
     Dates: start: 20120422, end: 20120422
  6. K-DUR [Concomitant]
     Active Substance: POTASSIUM CHLORIDE
     Indication: ELECTROLYTE IMBALANCE
     Route: 065
     Dates: start: 20120423, end: 20120423
  7. OBINUTUZUMAB [Suspect]
     Active Substance: OBINUTUZUMAB
     Indication: NON-HODGKIN^S LYMPHOMA UNSPECIFIED HISTOLOGY INDOLENT
     Dosage: DATE OF LAST DOSE (1000 MG) : 17/APR/2012, 16/JAN/2013, 18/JUL/2012.
     Route: 042
     Dates: start: 20120410
  8. ASA [Concomitant]
     Active Substance: ASPIRIN
     Indication: CARDIOVASCULAR EVENT PROPHYLAXIS
     Route: 065
     Dates: start: 2002
  9. MAXERAN [Concomitant]
     Active Substance: METOCLOPRAMIDE HYDROCHLORIDE
     Indication: PROPHYLACTIC CHEMOTHERAPY
     Route: 065
     Dates: start: 20120410
  10. ALLOPURINOL. [Concomitant]
     Active Substance: ALLOPURINOL
     Route: 065
     Dates: start: 20120409
  11. PREDNISONE. [Concomitant]
     Active Substance: PREDNISONE
     Indication: PAIN
     Route: 065
     Dates: start: 20130222
  12. BENDAMUSTINE [Suspect]
     Active Substance: BENDAMUSTINE
     Indication: NON-HODGKIN^S LYMPHOMA UNSPECIFIED HISTOLOGY INDOLENT
     Dosage: DOSE AT THE TIME OF EVENT: 177 MG, DATE OF LAST DOSE OF BENDAMUSTINE:18/JUL/2012.?FREQUENCY : OVER 6
     Route: 042
     Dates: start: 20120410, end: 20120411
  13. BENDAMUSTINE [Suspect]
     Active Substance: BENDAMUSTINE
     Dosage: DOSE AT TIME OF EVENT 118 MG; DATE OF LAST DOSE OF RECEIVED ON 27/SEP/2012
     Route: 042
  14. PREDNISONE. [Concomitant]
     Active Substance: PREDNISONE
     Indication: ECZEMA
     Route: 065
     Dates: start: 20120723, end: 20120812
  15. ZOFRAN [Concomitant]
     Active Substance: ONDANSETRON HYDROCHLORIDE
     Indication: PROPHYLACTIC CHEMOTHERAPY
     Route: 065
     Dates: start: 20120420, end: 20120420
  16. BENADRYL [Concomitant]
     Active Substance: DIPHENHYDRAMINE HYDROCHLORIDE
     Route: 065
     Dates: start: 20120420, end: 20120420
  17. LASIX [Concomitant]
     Active Substance: FUROSEMIDE
     Indication: TRANSFUSION
     Route: 065
     Dates: start: 20120822, end: 20120823

REACTIONS (3)
  - Febrile neutropenia [Recovered/Resolved]
  - Febrile neutropenia [Recovered/Resolved]
  - Anaemia [Recovered/Resolved]

NARRATIVE: CASE EVENT DATE: 20120417
